FAERS Safety Report 9333138 (Version 2)
Quarter: 2013Q2

REPORT INFORMATION
  Report Type: Spontaneous
  Country: CZ (occurrence: CZ)
  Receive Date: 20130606
  Receipt Date: 20130619
  Transmission Date: 20140414
  Serious: Yes (Hospitalization, Other)
  Sender: FDA-Public Use
  Company Number: CZ-SANOFI-AVENTIS-2013SA053649

PATIENT
  Sex: Female
  Weight: 79 kg

DRUGS (2)
  1. TROMBEX [Suspect]
     Indication: PERIPHERAL ISCHAEMIA
     Route: 048
  2. ACETYLSALICYLIC ACID [Concomitant]
     Indication: PERIPHERAL ISCHAEMIA

REACTIONS (1)
  - Drug-induced liver injury [Recovering/Resolving]
